FAERS Safety Report 5751256-4 (Version None)
Quarter: 2008Q2

REPORT INFORMATION
  Report Type: 
  Country: None (occurrence: None)
  Receive Date: 20080528
  Receipt Date: 20080521
  Transmission Date: 20081010
  Serious: Yes (Other)
  Sender: FDA-Public Use
  Company Number: AU-PFIZER INC-2008043952

PATIENT
  Age: 57 Year
  Sex: Female

DRUGS (1)
  1. SALAZOPYRIN EN TABLETS [Suspect]
     Indication: COLITIS

REACTIONS (2)
  - DEMENTIA [None]
  - DRUG INEFFECTIVE [None]
